FAERS Safety Report 22136616 (Version 1)
Quarter: 2023Q1

REPORT INFORMATION
  Report Type: Spontaneous
  Country: CN (occurrence: CN)
  Receive Date: 20230324
  Receipt Date: 20230324
  Transmission Date: 20230417
  Serious: Yes (Other)
  Sender: FDA-Public Use
  Company Number: CN-NAPPMUNDI-GBR-2023-0105990

PATIENT
  Age: 68 Year
  Sex: Male
  Weight: 68 kg

DRUGS (3)
  1. OXYCONTIN [Suspect]
     Active Substance: OXYCODONE HYDROCHLORIDE
     Indication: Pain in extremity
     Dosage: 120 MILLIGRAM, Q12H
     Route: 048
     Dates: start: 20230223, end: 20230308
  2. MORPHINE HYDROCHLORIDE [Suspect]
     Active Substance: MORPHINE HYDROCHLORIDE
     Indication: Abdominal distension
     Dosage: 10 MILLIGRAM, DAILY
     Route: 058
     Dates: start: 20230308, end: 20230308
  3. MORPHINE HYDROCHLORIDE [Suspect]
     Active Substance: MORPHINE HYDROCHLORIDE
     Indication: Pain

REACTIONS (1)
  - Poisoning [Recovered/Resolved]

NARRATIVE: CASE EVENT DATE: 20230309
